FAERS Safety Report 11970698 (Version 1)
Quarter: 2016Q1

REPORT INFORMATION
  Report Type: Report from Study
  Country: US (occurrence: US)
  Receive Date: 20160128
  Receipt Date: 20160128
  Transmission Date: 20160526
  Serious: No
  Sender: FDA-Public Use
  Company Number: US-ABBVIE-15K-163-1389029-00

PATIENT
  Sex: Female

DRUGS (1)
  1. HUMIRA [Suspect]
     Active Substance: ADALIMUMAB
     Indication: ANKYLOSING SPONDYLITIS
     Route: 058
     Dates: start: 20150220

REACTIONS (7)
  - Drug effect decreased [Not Recovered/Not Resolved]
  - Back pain [Recovering/Resolving]
  - Injection site erythema [Unknown]
  - Injection site papule [Unknown]
  - Injection site irritation [Unknown]
  - Injection site warmth [Unknown]
  - Dry skin [Not Recovered/Not Resolved]

NARRATIVE: CASE EVENT DATE: 2015
